FAERS Safety Report 22108182 (Version 3)
Quarter: 2024Q1

REPORT INFORMATION
  Report Type: Spontaneous
  Country: US (occurrence: US)
  Receive Date: 20230317
  Receipt Date: 20240212
  Transmission Date: 20240410
  Serious: Yes (Other)
  Sender: FDA-Public Use
  Company Number: US-BRISTOL-MYERS SQUIBB COMPANY-2023-038862

PATIENT
  Age: 79 Year
  Sex: Female
  Weight: 87.09 kg

DRUGS (2)
  1. REVLIMID [Suspect]
     Active Substance: LENALIDOMIDE
     Indication: Plasma cell myeloma
     Route: 048
  2. REVLIMID [Suspect]
     Active Substance: LENALIDOMIDE
     Dosage: DAILY FOR 21 DAYS
     Route: 048
     Dates: start: 20210727

REACTIONS (5)
  - Sinusitis [Unknown]
  - Off label use [Unknown]
  - Cough [Unknown]
  - Sneezing [Unknown]
  - Plasma cell myeloma [Unknown]
